FAERS Safety Report 4895271-1 (Version None)
Quarter: 2006Q1

REPORT INFORMATION
  Report Type: 
  Country: None (occurrence: None)
  Receive Date: 20060130
  Receipt Date: 20060126
  Transmission Date: 20060701
  Serious: Yes (Life-Threatening, Hospitalization)
  Sender: FDA-Public Use
  Company Number: 433053

PATIENT
  Age: 82 Year
  Sex: Male

DRUGS (5)
  1. KREDEX [Suspect]
     Route: 048
     Dates: end: 20051209
  2. DIGOXIN [Suspect]
     Route: 048
     Dates: end: 20051209
  3. CORDARONE [Suspect]
     Indication: DRUG USE FOR UNKNOWN INDICATION
     Route: 048
     Dates: start: 20051115, end: 20051209
  4. COVERSYL [Concomitant]
  5. LASILIX [Concomitant]

REACTIONS (5)
  - BRADYCARDIA [None]
  - CARDIAC ARREST [None]
  - HYPOCALCAEMIA [None]
  - TORSADE DE POINTES [None]
  - VENTRICULAR EXTRASYSTOLES [None]
